FAERS Safety Report 6474115-0 (Version None)
Quarter: 2009Q4

REPORT INFORMATION
  Report Type: 
  Country: None (occurrence: None)
  Receive Date: 20091204
  Receipt Date: 20091125
  Transmission Date: 20100525
  Serious: Yes (Other)
  Sender: FDA-Public Use
  Company Number: US-WYE-H12426709

PATIENT

DRUGS (2)
  1. RAPAMUNE [Suspect]
     Indication: PROPHYLAXIS AGAINST TRANSPLANT REJECTION
     Dosage: DOSE AND FREQUENCY NOT SPECIFIED
     Route: 065
  2. SUNITINIB MALATE [Concomitant]
     Indication: RENAL CELL CARCINOMA
     Dosage: DOSE AND FREQUENCY NOT SPECIFIED
     Route: 065

REACTIONS (1)
  - METASTATIC RENAL CELL CARCINOMA [None]
